FAERS Safety Report 4611035-8 (Version None)
Quarter: 2005Q1

REPORT INFORMATION
  Report Type: 
  Country: None (occurrence: None)
  Receive Date: 20050317
  Receipt Date: 20050214
  Transmission Date: 20050727
  Serious: Yes (Death)
  Sender: FDA-Public Use
  Company Number: 200511162US

PATIENT
  Sex: Female
  Weight: 139 kg

DRUGS (15)
  1. KETEK [Suspect]
     Indication: SKIN INFECTION
     Route: 048
     Dates: start: 20050204, end: 20050207
  2. ELAVIL [Concomitant]
     Dosage: DOSE: NOT PROVIDED
  3. GLIPIZIDE [Concomitant]
     Dosage: DOSE: NOT PROVIDED
  4. KEPPRA [Concomitant]
     Dosage: DOSE: NOT PROVIDED
  5. METHADONE [Concomitant]
     Dosage: DOSE: NOT PROVIDED
  6. REMERON [Concomitant]
     Dosage: DOSE: NOT PROVIDED
  7. RISPERDAL [Concomitant]
     Dosage: DOSE: NOT PROVIDED
  8. XANAX [Concomitant]
     Dosage: DOSE: NOT PROVIDED
  9. FLOVENT [Concomitant]
     Dosage: DOSE: NOT PROVIDED
  10. LASIX [Concomitant]
     Dosage: DOSE: NOT PROVIDED
  11. SPIRONOLACTONE [Concomitant]
     Dosage: DOSE: NOT PROVIDED
  12. ZANAFLEX [Concomitant]
     Dosage: DOSE: NOT PROVIDED
  13. PHENERGAN [Concomitant]
     Dosage: DOSE: NOT PROVIDED
  14. ALBUTEROL [Concomitant]
     Dosage: DOSE: NOT PROVIDED
  15. OXYGEN [Concomitant]
     Dosage: DOSE: NOT PROVIDED

REACTIONS (2)
  - CHRONIC OBSTRUCTIVE AIRWAYS DISEASE EXACERBATED [None]
  - DIABETES MELLITUS INADEQUATE CONTROL [None]
